FAERS Safety Report 13442188 (Version 2)
Quarter: 2017Q2

REPORT INFORMATION
  Report Type: Spontaneous
  Country: JP (occurrence: JP)
  Receive Date: 20170414
  Receipt Date: 20170420
  Transmission Date: 20170830
  Serious: Yes (Other)
  Sender: FDA-Public Use
  Company Number: JP-009507513-1704JPN005492

PATIENT
  Age: 66 Year
  Sex: Male

DRUGS (9)
  1. DEXAMETHASONE. [Suspect]
     Active Substance: DEXAMETHASONE
     Dosage: 3 COURSE; 20 MG/DAY ON DAYS 1, 2, 4, 5, 8, 9, 11 AND 12 (3 WEEK CYCLES)
     Route: 048
     Dates: start: 2016, end: 2016
  2. BORTEZOMIB [Suspect]
     Active Substance: BORTEZOMIB
     Dosage: 3 COURSE; 1.3 MG/M2 ON DAYS 1, 4, 8 AND 11 (3 WEEK CYCLES)
     Route: 058
     Dates: start: 2016, end: 2016
  3. DEXAMETHASONE. [Suspect]
     Active Substance: DEXAMETHASONE
     Dosage: 2 COURSE; 20 MG/DAY ON DAYS 1, 2, 4, 5, 8, 9, 11 AND 12 (3 WEEK CYCLES)
     Route: 048
     Dates: start: 2016, end: 2016
  4. PANOBINOSTAT [Suspect]
     Active Substance: PANOBINOSTAT
     Indication: PLASMA CELL MYELOMA RECURRENT
     Dosage: 1 COURSE; 20 MG/DAY ON DAYS 1, 3, 5, 8, 10 AND 12 (3 WEEK CYCLES)
     Route: 048
     Dates: start: 201601, end: 2016
  5. PANOBINOSTAT [Suspect]
     Active Substance: PANOBINOSTAT
     Dosage: 3 COURSE; 10 MG/DAY ON DAYS 1, 3, 5, 8, 10 (3 WEEK CYCLES)
     Route: 048
     Dates: start: 2016, end: 2016
  6. BORTEZOMIB [Suspect]
     Active Substance: BORTEZOMIB
     Indication: PLASMA CELL MYELOMA RECURRENT
     Dosage: 1 COURSE; 1.3 MG/M2 ON DAYS 1, 4, 8 AND 11 (3 WEEK CYCLES)
     Route: 058
     Dates: start: 201601, end: 2016
  7. PANOBINOSTAT [Suspect]
     Active Substance: PANOBINOSTAT
     Dosage: 2 COURSE; 10 MG/DAY ON DAYS 1, 3, 5, 8, 10 (3 WEEK CYCLES)
     Route: 048
     Dates: start: 2016, end: 2016
  8. BORTEZOMIB [Suspect]
     Active Substance: BORTEZOMIB
     Dosage: 2 COURSE; 1.3 MG/M2 ON DAYS 1, 4, 8 AND 11 (3 WEEK CYCLES)
     Route: 058
     Dates: start: 2016, end: 2016
  9. DEXAMETHASONE. [Suspect]
     Active Substance: DEXAMETHASONE
     Indication: PLASMA CELL MYELOMA RECURRENT
     Dosage: 1 COURSE; 20 MG/DAY ON DAYS 1, 2, 4, 5, 8, 9, 11 AND 12 (3 WEEK CYCLES)
     Route: 048
     Dates: start: 201601, end: 2016

REACTIONS (3)
  - Nausea [Unknown]
  - Fatigue [Unknown]
  - Dehydration [Unknown]

NARRATIVE: CASE EVENT DATE: 2016
